FAERS Safety Report 24525516 (Version 1)
Quarter: 2024Q4

REPORT INFORMATION
  Report Type: Spontaneous
  Country: IN (occurrence: IN)
  Receive Date: 20241020
  Receipt Date: 20241020
  Transmission Date: 20250114
  Serious: Yes (Hospitalization)
  Sender: GE HEALTHCARE
  Company Number: IN-GE HEALTHCARE-2024CSU011457

PATIENT
  Age: 65 Year
  Sex: Male

DRUGS (1)
  1. OMNIPAQUE [Suspect]
     Active Substance: IOHEXOL
     Indication: Angioplasty
     Dosage: 90 ML, TOTAL
     Route: 013

REACTIONS (1)
  - Pancreatitis acute [Recovered/Resolved]
